FAERS Safety Report 25223237 (Version 2)
Quarter: 2025Q2

REPORT INFORMATION
  Report Type: Spontaneous
  Country: CA (occurrence: CA)
  Receive Date: 20250422
  Receipt Date: 20250430
  Transmission Date: 20250716
  Serious: Yes (Death, Hospitalization)
  Sender: DR REDDYS
  Company Number: CA-DRL-USA-CAN/2025/04/005429

PATIENT
  Age: 70 Year
  Sex: Male
  Weight: 81.4 kg

DRUGS (5)
  1. AZACITIDINE [Suspect]
     Active Substance: AZACITIDINE
     Indication: Acute myeloid leukaemia
     Route: 058
     Dates: start: 20240213, end: 20240218
  2. AZACITIDINE [Suspect]
     Active Substance: AZACITIDINE
     Indication: Myelofibrosis
  3. VENETOCLAX [Suspect]
     Active Substance: VENETOCLAX
     Indication: Acute myeloid leukaemia
     Route: 048
     Dates: start: 20250214, end: 20250214
  4. VENETOCLAX [Suspect]
     Active Substance: VENETOCLAX
     Indication: Myelofibrosis
     Route: 048
     Dates: start: 20250213, end: 20250213
  5. VENETOCLAX [Suspect]
     Active Substance: VENETOCLAX
     Route: 048
     Dates: start: 20250215, end: 20250312

REACTIONS (1)
  - Confusional state [Fatal]

NARRATIVE: CASE EVENT DATE: 20250214
